FAERS Safety Report 6753858-5 (Version None)
Quarter: 2010Q2

REPORT INFORMATION
  Report Type: 
  Country: None (occurrence: None)
  Receive Date: 20100601
  Receipt Date: 20100520
  Transmission Date: 20101027
  Serious: Yes (Hospitalization)
  Sender: FDA-Public Use
  Company Number: 2010SP028719

PATIENT
  Age: 57 Year
  Sex: Female

DRUGS (3)
  1. TEMOZOLOMIDE [Suspect]
     Indication: GLIOBLASTOMA MULTIFORME
     Dosage: 75 MG/M2;QD
  2. DEXAMETHASONE [Suspect]
     Indication: GLIOBLASTOMA MULTIFORME
     Dosage: 12 MG;QD;
  3. COTRIM [Concomitant]

REACTIONS (9)
  - COLITIS ULCERATIVE [None]
  - CYTOMEGALOVIRUS GASTROINTESTINAL INFECTION [None]
  - DEVICE RELATED INFECTION [None]
  - ESCHERICHIA INFECTION [None]
  - IMMUNOSUPPRESSION [None]
  - LYMPHOPENIA [None]
  - MENINGITIS BACTERIAL [None]
  - OPPORTUNISTIC INFECTION [None]
  - RECTAL HAEMORRHAGE [None]
